FAERS Safety Report 8566595 (Version 2)
Quarter: 2012Q4

REPORT INFORMATION
  Report Type: 
  Country: BR (occurrence: BR)
  Receive Date: 20120517
  Receipt Date: 20121108
  Transmission Date: 20130627
  Serious: Yes (Hospitalization, Other)
  Sender: FDA-Public Use
  Company Number: BR-ASTRAZENECA-2012SE30482

PATIENT
  Age: 69 Year
  Sex: Female
  Weight: 60 kg

DRUGS (7)
  1. CRESTOR [Suspect]
     Indication: DYSLIPIDAEMIA
     Route: 048
     Dates: end: 201203
  2. CRESTOR [Suspect]
     Indication: DYSLIPIDAEMIA
     Route: 048
     Dates: start: 201203
  3. DICLOFENAC [Suspect]
  4. UNSPECIFIED INGREDIENT [Suspect]
  5. LOTAR [Concomitant]
     Indication: HYPERTENSION
     Route: 048
  6. LIPLESS [Concomitant]
     Indication: DYSLIPIDAEMIA
     Dates: start: 1996, end: 2010
  7. LIPLESS [Concomitant]
     Indication: DYSLIPIDAEMIA
     Dates: start: 201209

REACTIONS (12)
  - Adenoma benign [Recovered/Resolved]
  - Umbilical hernia [Recovered/Resolved]
  - Breast cancer recurrent [Recovered/Resolved]
  - Breast cancer female [Not Recovered/Not Resolved]
  - Renal failure [Not Recovered/Not Resolved]
  - Myocardial ischaemia [Not Recovered/Not Resolved]
  - Pancreatic cyst [Not Recovered/Not Resolved]
  - Fibromyalgia [Not Recovered/Not Resolved]
  - Anxiety [Not Recovered/Not Resolved]
  - Blood triglycerides increased [Not Recovered/Not Resolved]
  - Blood cholesterol increased [Not Recovered/Not Resolved]
  - Drug ineffective [Unknown]
